FAERS Safety Report 20976426 (Version 1)
Quarter: 2022Q2

REPORT INFORMATION
  Report Type: Spontaneous
  Country: US (occurrence: US)
  Receive Date: 20220617
  Receipt Date: 20220617
  Transmission Date: 20220720
  Serious: No
  Sender: FDA-Public Use
  Company Number: US-PFIZER INC-202200839362

PATIENT
  Age: 70 Year
  Sex: Female

DRUGS (1)
  1. PAXLOVID [Suspect]
     Active Substance: NIRMATRELVIR\RITONAVIR
     Indication: COVID-19 treatment
     Dosage: 6 PILLS, TO TAKE 3 IN THE MORNING AND 3 IN THE EVENING

REACTIONS (6)
  - Dyspepsia [Unknown]
  - Oesophageal pain [Unknown]
  - Cough [Unknown]
  - Feeling abnormal [Unknown]
  - Insomnia [Unknown]
  - Malaise [Unknown]
